FAERS Safety Report 5623125-1 (Version None)
Quarter: 2008Q1

REPORT INFORMATION
  Report Type: 
  Country: None (occurrence: None)
  Receive Date: 20080212
  Receipt Date: 20080201
  Transmission Date: 20080703
  Serious: Yes (Other)
  Sender: FDA-Public Use
  Company Number: B0502600A

PATIENT
  Age: 34 Year
  Sex: Male
  Weight: 70 kg

DRUGS (2)
  1. MALARONE [Suspect]
     Indication: MALARIA PROPHYLAXIS
     Dosage: 1TAB PER DAY
     Route: 048
     Dates: start: 20070908, end: 20071007
  2. IVERMECTIN [Suspect]
     Indication: CUTANEOUS LARVA MIGRANS
     Dosage: 4TAB PER DAY
     Route: 048
     Dates: start: 20071018, end: 20071018

REACTIONS (2)
  - CUTANEOUS LARVA MIGRANS [None]
  - GUTTATE PSORIASIS [None]
